FAERS Safety Report 8860964 (Version 1)
Quarter: 2012Q4

REPORT INFORMATION
  Report Type: 
  Country: US (occurrence: US)
  Receive Date: 20121025
  Receipt Date: 20121025
  Transmission Date: 20130627
  Serious: No
  Sender: FDA-Public Use
  Company Number: US-AMGEN-USASP2012012613

PATIENT
  Age: 53 Year
  Sex: Female
  Weight: 99.77 kg

DRUGS (10)
  1. ENBREL [Suspect]
     Indication: PRODUCT USED FOR UNKNOWN INDICATION
     Dosage: 50 mg, qwk
     Route: 058
  2. XANAX [Concomitant]
     Dosage: 0.5 mg, UNK
  3. LISINOPRIL [Concomitant]
     Dosage: 40 mg, UNK
  4. WELLBUTRIN [Concomitant]
     Dosage: 100 mg, UNK
  5. PRILOSEC                           /00661201/ [Concomitant]
     Dosage: 10 mg, UNK
  6. CELEXA                             /00582602/ [Concomitant]
     Dosage: 10 mg, UNK
  7. MOBIC [Concomitant]
     Dosage: 7.5 mg, UNK
  8. CALCIUM W/VITAMIN D                /00188401/ [Concomitant]
  9. FOLIC ACID [Concomitant]
     Dosage: 20 mg, UNK
  10. METHOTREXATE [Concomitant]
     Dosage: 1 g, UNK

REACTIONS (2)
  - Dizziness postural [Recovering/Resolving]
  - Hypertension [Recovering/Resolving]
